FAERS Safety Report 4713670-5 (Version None)
Quarter: 2005Q3

REPORT INFORMATION
  Report Type: 
  Country: None (occurrence: None)
  Receive Date: 20050712
  Receipt Date: 20050629
  Transmission Date: 20060218
  Serious: Yes (Death)
  Sender: FDA-Public Use
  Company Number: LTI2005A00156

PATIENT
  Age: 70 Year
  Sex: Male

DRUGS (8)
  1. ACTOS [Suspect]
     Indication: DIABETES MELLITUS NON-INSULIN-DEPENDENT
     Dosage: 15 MG (15 MG,1 IN 1 D), ORAL
     Route: 048
     Dates: start: 20040501, end: 20040801
  2. ACTOS [Suspect]
     Indication: DIABETES MELLITUS NON-INSULIN-DEPENDENT
     Dosage: 30 MG (30 MG,1 IN 1D),ORAL
     Route: 048
     Dates: start: 20040801, end: 20041022
  3. ENALAPRIL MALEATE [Concomitant]
  4. ALDALIX (OSYROL-LASIX) [Concomitant]
  5. ICAZ (ISRADIPINE) [Concomitant]
  6. CORDARONE [Concomitant]
  7. DIGOXIN [Concomitant]
  8. NOVONORM (REPAGLINIDE) [Concomitant]

REACTIONS (4)
  - DYSPNOEA EXACERBATED [None]
  - FLUID RETENTION [None]
  - RENAL FAILURE [None]
  - SODIUM RETENTION [None]
